FAERS Safety Report 8030353-7 (Version None)
Quarter: 2012Q1

REPORT INFORMATION
  Report Type: 
  Country: None (occurrence: None)
  Receive Date: 20120109
  Receipt Date: 20111227
  Transmission Date: 20120608
  Serious: Yes (Hospitalization)
  Sender: FDA-Public Use
  Company Number: JP-AMGEN-JPNCT2011064224

PATIENT
  Age: 76 Year
  Sex: Male
  Weight: 49 kg

DRUGS (3)
  1. FENTANYL-100 [Concomitant]
     Dosage: 8.4 MG, UNK
     Route: 062
     Dates: start: 20111118, end: 20111120
  2. PANITUMUMAB [Suspect]
     Indication: COLORECTAL CANCER
     Dosage: 300 MG, Q2WK
     Route: 041
     Dates: start: 20111021, end: 20111118
  3. FENTANYL-100 [Concomitant]
     Indication: ANALGESIC THERAPY
     Dosage: 4.2 MG, UNK
     Route: 062
     Dates: start: 20111114, end: 20111117

REACTIONS (2)
  - LIVER DISORDER [None]
  - RESPIRATORY DEPRESSION [None]
